FAERS Safety Report 9409463 (Version 1)
Quarter: 2013Q3

REPORT INFORMATION
  Report Type: Spontaneous
  Country: US (occurrence: US)
  Receive Date: 20130719
  Receipt Date: 20130719
  Transmission Date: 20140515
  Serious: Yes (Hospitalization)
  Sender: FDA-Public Use
  Company Number: US-ROCHE-1249792

PATIENT
  Age: 57 Year
  Sex: Female

DRUGS (3)
  1. TRASTUZUMAB [Suspect]
     Indication: BREAST CANCER
     Route: 042
  2. CARBOPLATIN [Suspect]
     Indication: BREAST CANCER
     Dosage: AUC OF FIVE
     Route: 042
  3. DOCETAXEL [Suspect]
     Indication: BREAST CANCER
     Route: 042

REACTIONS (3)
  - Thrombotic microangiopathy [Recovered/Resolved]
  - Dyspnoea [Unknown]
  - Fatigue [Unknown]
